FAERS Safety Report 10028519 (Version 1)
Quarter: 2014Q1

REPORT INFORMATION
  Report Type: Spontaneous
  Country: US (occurrence: None)
  Receive Date: 20140304
  Receipt Date: 20140304
  Transmission Date: 20141002
  Serious: Yes (Other)
  Sender: FDA-Public Use
  Company Number: 396703

PATIENT
  Age: 68 Year
  Sex: Male
  Weight: 95.2 kg

DRUGS (1)
  1. NOVOLIN N RELI-ON [Suspect]
     Indication: TYPE 1 DIABETES MELLITUS
     Dosage: 11 UNIT IN THE AM, 17 UNIT IN THE PM, SUBCUTANEOUS
     Route: 058
     Dates: start: 2012

REACTIONS (2)
  - Hypoglycaemic seizure [None]
  - Hypoglycaemic unconsciousness [None]
